FAERS Safety Report 14141065 (Version 5)
Quarter: 2018Q3

REPORT INFORMATION
  Report Type: Spontaneous
  Country: SI (occurrence: SI)
  Receive Date: 20171030
  Receipt Date: 20180726
  Transmission Date: 20181010
  Serious: Yes (Hospitalization, Other)
  Sender: FDA-Public Use
  Company Number: SI-009507513-1710SVN013192

PATIENT
  Age: 63 Year
  Sex: Male

DRUGS (14)
  1. DISTRANEURIN [Concomitant]
     Active Substance: CLOMETHIAZOLE
  2. ACIPAN [Concomitant]
     Active Substance: PANTOPRAZOLE SODIUM
  3. MIRZATEN [Concomitant]
     Active Substance: MIRTAZAPINE
  4. EDEMID [Concomitant]
     Active Substance: FUROSEMIDE
  5. ZEPATIER [Suspect]
     Active Substance: ELBASVIR\GRAZOPREVIR
     Indication: FIBROSIS
     Dosage: UNK
     Route: 048
     Dates: start: 20171010, end: 20180102
  6. ERYCYTOL [Concomitant]
  7. NOVOMIX 30 [Concomitant]
     Active Substance: INSULIN ASPART
  8. CARDURA [Concomitant]
     Active Substance: DOXAZOSIN MESYLATE
  9. RISPOLUX [Concomitant]
     Active Substance: RISPERIDONE
  10. PROSTIDE [Concomitant]
  11. FOLACIN [Concomitant]
     Active Substance: FOLIC ACID
  12. KEPPRA [Concomitant]
     Active Substance: LEVETIRACETAM
  13. HALDOL [Concomitant]
     Active Substance: HALOPERIDOL
  14. FERRUM LEK (IRON POLYMALTOSE) [Concomitant]

REACTIONS (4)
  - Hepatitis C [Unknown]
  - Hepatocellular carcinoma [Unknown]
  - Suicide attempt [Unknown]
  - Product use in unapproved indication [Unknown]

NARRATIVE: CASE EVENT DATE: 20171010
